FAERS Safety Report 13057666 (Version 1)
Quarter: 2016Q4

REPORT INFORMATION
  Report Type: Spontaneous
  Country: US (occurrence: US)
  Receive Date: 20161223
  Receipt Date: 20161223
  Transmission Date: 20170207
  Serious: No
  Sender: FDA-Public Use
  Company Number: US-AMGEN-USASP2016179882

PATIENT
  Age: 61 Year
  Sex: Female
  Weight: 121 kg

DRUGS (1)
  1. ENBREL [Suspect]
     Active Substance: ETANERCEPT
     Indication: RHEUMATOID ARTHRITIS
     Dosage: 50 MG, QWK
     Route: 058
     Dates: start: 20161110

REACTIONS (5)
  - Influenza [Unknown]
  - Sinus disorder [Unknown]
  - Nasopharyngitis [Unknown]
  - Nausea [Unknown]
  - Rash erythematous [Unknown]

NARRATIVE: CASE EVENT DATE: 2016
